FAERS Safety Report 10044357 (Version 1)
Quarter: 2014Q1

REPORT INFORMATION
  Report Type: Spontaneous
  Country: US (occurrence: US)
  Receive Date: 20140328
  Receipt Date: 20140328
  Transmission Date: 20141002
  Serious: Yes (Other)
  Sender: FDA-Public Use
  Company Number: US-PFIZER INC-2014088627

PATIENT
  Age: 34 Year
  Sex: Female

DRUGS (2)
  1. VENLAFAXINE HCL [Suspect]
     Indication: DEPRESSION
     Dosage: 150 MG, 2X/DAY
     Route: 048
     Dates: end: 2014
  2. VENLAFAXINE HCL [Suspect]
     Indication: ANXIETY

REACTIONS (10)
  - Carbon monoxide poisoning [Unknown]
  - Loss of consciousness [Unknown]
  - Apparent death [Unknown]
  - Convulsion [Unknown]
  - Heart injury [Unknown]
  - Cardiovascular disorder [Unknown]
  - Tachycardia [Unknown]
  - Nervous system disorder [Unknown]
  - Visual acuity reduced [Unknown]
  - Amnesia [Unknown]
